FAERS Safety Report 16733241 (Version 1)
Quarter: 2019Q3

REPORT INFORMATION
  Report Type: Report from Study
  Country: ES (occurrence: ES)
  Receive Date: 20190823
  Receipt Date: 20190823
  Transmission Date: 20191005
  Serious: Yes (Life-Threatening, Hospitalization)
  Sender: FDA-Public Use
  Company Number: ES-ROCHE-2385398

PATIENT
  Age: 47 Year
  Sex: Female

DRUGS (6)
  1. OLANZAPINA [Interacting]
     Active Substance: OLANZAPINE
     Route: 048
     Dates: start: 20170718, end: 20180628
  2. DESVENLAFAXINA (DESVENLAFAXINE) [Suspect]
     Active Substance: DESVENLAFAXINE
     Route: 048
     Dates: start: 20180629, end: 20180629
  3. OLANZAPINA [Interacting]
     Active Substance: OLANZAPINE
     Indication: OBSESSIVE-COMPULSIVE DISORDER
     Route: 048
     Dates: start: 20180629, end: 20180629
  4. DESVENLAFAXINA (DESVENLAFAXINE) [Suspect]
     Active Substance: DESVENLAFAXINE
     Indication: OBSESSIVE-COMPULSIVE DISORDER
     Route: 048
     Dates: start: 20180314, end: 20180628
  5. DIAZEPAM. [Suspect]
     Active Substance: DIAZEPAM
     Indication: OBSESSIVE-COMPULSIVE DISORDER
     Route: 048
     Dates: start: 20180629, end: 20180629
  6. DIAZEPAM. [Interacting]
     Active Substance: DIAZEPAM
     Route: 048
     Dates: start: 20121004, end: 20180628

REACTIONS (3)
  - Drug interaction [Unknown]
  - Suicide attempt [Unknown]
  - Depressed level of consciousness [Recovered/Resolved]

NARRATIVE: CASE EVENT DATE: 20180629
